FAERS Safety Report 15041276 (Version 1)
Quarter: 2018Q2

REPORT INFORMATION
  Report Type: Spontaneous
  Country: US (occurrence: US)
  Receive Date: 20180621
  Receipt Date: 20180621
  Transmission Date: 20180711
  Serious: No
  Sender: FDA-Public Use
  Company Number: US-009507513-1805USA010863

PATIENT
  Age: 56 Year
  Sex: Male

DRUGS (1)
  1. PRINIVIL [Suspect]
     Active Substance: LISINOPRIL
     Indication: ISCHAEMIC CARDIOMYOPATHY
     Dosage: 10 MG, DAILY
     Route: 048

REACTIONS (1)
  - Product use in unapproved indication [Unknown]
